FAERS Safety Report 17785554 (Version 4)
Quarter: 2020Q4

REPORT INFORMATION
  Report Type: Spontaneous
  Country: US (occurrence: US)
  Receive Date: 20200514
  Receipt Date: 20201029
  Transmission Date: 20210113
  Serious: Yes (Other)
  Sender: FDA-Public Use
  Company Number: US-BAYER-2020-072294

PATIENT
  Age: 14 Year
  Sex: Male

DRUGS (5)
  1. KOGENATE FS [Suspect]
     Active Substance: ANTIHEMOPHILIC FACTOR, HUMAN RECOMBINANT
     Dosage: UNK UNK, ONCE, AFTER HIS TOOTH FELL OUT
     Route: 042
     Dates: start: 202007, end: 202007
  2. KOGENATE FS [Suspect]
     Active Substance: ANTIHEMOPHILIC FACTOR, HUMAN RECOMBINANT
     Dosage: 1250 IU, UNK
     Route: 042
  3. KOGENATE FS [Suspect]
     Active Substance: ANTIHEMOPHILIC FACTOR, HUMAN RECOMBINANT
     Dosage: 2 DF, ONCE (INFUSED 2 DOSES DUE TO THE TOOTH LOSS)
     Route: 042
  4. KOGENATE FS [Suspect]
     Active Substance: ANTIHEMOPHILIC FACTOR, HUMAN RECOMBINANT
     Dosage: UNK UNK, ONCE, EXTRA DOSE PRIOR TO HIS DERMATOLOGIST APPOINTMENT ABOUT 3 WEEKS AGO
     Route: 042
     Dates: start: 202006, end: 202006
  5. KOGENATE FS [Suspect]
     Active Substance: ANTIHEMOPHILIC FACTOR, HUMAN RECOMBINANT
     Dosage: EXTRA DOSE, ONCE, AFTER HIS TOOTH FELL OUT
     Route: 042
     Dates: start: 202009, end: 202009

REACTIONS (4)
  - Tooth loss [None]
  - Haemorrhage [None]
  - Tooth loss [None]
  - Tooth loss [Recovered/Resolved]

NARRATIVE: CASE EVENT DATE: 20200417
